FAERS Safety Report 5793614-8 (Version None)
Quarter: 2008Q2

REPORT INFORMATION
  Report Type: 
  Country: None (occurrence: None)
  Receive Date: 20080627
  Receipt Date: 20080623
  Transmission Date: 20081010
  Serious: Yes (Life-Threatening, Hospitalization, Other)
  Sender: FDA-Public Use
  Company Number: FR-BRISTOL-MYERS SQUIBB COMPANY-14237937

PATIENT
  Age: 39 Year
  Sex: Male

DRUGS (4)
  1. ABILIFY [Suspect]
     Dosage: 1 DOSAGE FORM = 1.5(UNITS NOT SPECIFIED) FROM 16FEB06, THEN 2/D FROM DEC07
     Dates: start: 20060216, end: 20080404
  2. DEROXAT [Interacting]
     Dosage: 1 DOSAGE FORM = 20MG TO 40/60MG PER DAY; INITIATED 18JUL07 AT 20MG, UPTO 40 OR 60 MG/D IN DEC07
     Dates: start: 20070718, end: 20080404
  3. CLONAZEPAM [Concomitant]
     Dates: start: 20070321, end: 20080404
  4. DEPAKOTE [Concomitant]
     Dates: end: 20080404

REACTIONS (3)
  - CARDIO-RESPIRATORY ARREST [None]
  - DRUG INTERACTION [None]
  - VENTRICULAR FIBRILLATION [None]
